FAERS Safety Report 15678749 (Version 1)
Quarter: 2018Q4

REPORT INFORMATION
  Report Type: Spontaneous
  Country: US (occurrence: US)
  Receive Date: 20181201
  Receipt Date: 20181201
  Transmission Date: 20190205
  Serious: Yes (Disabling)
  Sender: FDA-Public Use
  Company Number: None

PATIENT
  Age: 53 Year
  Sex: Female
  Weight: 117 kg

DRUGS (1)
  1. AMLODIPIN, HYDROCHLORIZIDE [Suspect]
     Active Substance: AMLODIPINE\HYDROCHLOROTHIAZIDE
     Indication: HYPERTENSION
     Dosage: ?          QUANTITY:30 CAPSULE(S);?
     Route: 048

REACTIONS (7)
  - Rash [None]
  - Oral mucosal blistering [None]
  - Unevaluable event [None]
  - Rash pustular [None]
  - Limb discomfort [None]
  - Dyspnoea [None]
  - Alopecia [None]

NARRATIVE: CASE EVENT DATE: 20150123
